FAERS Safety Report 4885074-6 (Version None)
Quarter: 2006Q1

REPORT INFORMATION
  Report Type: 
  Country: None (occurrence: None)
  Receive Date: 20060119
  Receipt Date: 20050317
  Transmission Date: 20060701
  Serious: Yes (Hospitalization)
  Sender: FDA-Public Use
  Company Number: US-MERCK-0503USA03484

PATIENT
  Age: 53 Year
  Sex: Female
  Weight: 100 kg

DRUGS (14)
  1. VIOXX [Suspect]
     Indication: OSTEOARTHRITIS
     Route: 048
     Dates: start: 20040101, end: 20041111
  2. LOTREL [Concomitant]
     Route: 065
  3. METFORMIN [Concomitant]
     Route: 065
  4. AVANDIA [Concomitant]
     Route: 065
  5. PREMARIN [Concomitant]
     Route: 065
  6. NOVOLIN [Concomitant]
     Route: 065
  7. TOPROL-XL [Concomitant]
     Route: 065
  8. NEXIUM [Concomitant]
     Route: 065
  9. ACETAMINOPHEN AND CODEINE [Concomitant]
     Route: 065
  10. ZOLOFT [Concomitant]
     Route: 065
  11. CLONAZEPAM [Concomitant]
     Route: 065
  12. PLAVIX [Concomitant]
     Route: 065
  13. [THERAPY UNSPECIFIED] [Concomitant]
     Route: 065
  14. LIPITOR [Concomitant]
     Route: 065

REACTIONS (5)
  - BLOOD GLUCOSE DECREASED [None]
  - CHEST PAIN [None]
  - INJURY [None]
  - MYOCARDIAL INFARCTION [None]
  - OVERDOSE [None]
